FAERS Safety Report 9181047 (Version 1)
Quarter: 2013Q1

REPORT INFORMATION
  Report Type: Spontaneous
  Country: US (occurrence: US)
  Receive Date: 20130322
  Receipt Date: 20130322
  Transmission Date: 20140127
  Serious: Yes (Hospitalization)
  Sender: FDA-Public Use
  Company Number: US-BAYER-2013-033348

PATIENT
  Age: 45 Year
  Sex: Female

DRUGS (9)
  1. YAZ [Suspect]
  2. YASMIN [Suspect]
  3. ALLEGRA [Concomitant]
  4. LUNESTA [Concomitant]
     Indication: INSOMNIA
     Dosage: 3 MG, UNK
  5. RELPAX [Concomitant]
     Indication: MIGRAINE
     Dosage: 40 MG, UNK
     Dates: start: 20080215
  6. RELPAX [Concomitant]
     Indication: MIGRAINE
     Dosage: 20 MG, UNK
     Dates: start: 20080429
  7. PREDNISONE [Concomitant]
     Dosage: 20 MG, UNK
  8. MACROBID [Concomitant]
  9. ZANAFLEX [Concomitant]
     Indication: MUSCLE TIGHTNESS

REACTIONS (1)
  - Cerebrovascular accident [None]
